FAERS Safety Report 7692601-2 (Version None)
Quarter: 2011Q3

REPORT INFORMATION
  Report Type: 
  Country: None (occurrence: None)
  Receive Date: 20110819
  Receipt Date: 20110811
  Transmission Date: 20111222
  Serious: Yes (Hospitalization)
  Sender: FDA-Public Use
  Company Number: US-BIOGENIDEC-2011BI027948

PATIENT
  Age: 40 Year
  Sex: Male

DRUGS (5)
  1. TYSABRI [Suspect]
     Indication: MULTIPLE SCLEROSIS
     Route: 042
     Dates: start: 20110613, end: 20110701
  2. TYSABRI [Suspect]
     Route: 042
     Dates: start: 20040101, end: 20050101
  3. TOPAMAX [Concomitant]
  4. CRANBERRY PILLS [Concomitant]
     Indication: BLADDER DISORDER
  5. GABAPENTIN [Concomitant]

REACTIONS (1)
  - HYPERSENSITIVITY [None]
